FAERS Safety Report 7562021-X (Version None)
Quarter: 2011Q2

REPORT INFORMATION
  Report Type: 
  Country: None (occurrence: None)
  Receive Date: 20110622
  Receipt Date: 20110603
  Transmission Date: 20111010
  Serious: Yes (Hospitalization, Other)
  Sender: FDA-Public Use
  Company Number: PHHY2011US49346

PATIENT
  Sex: Female

DRUGS (2)
  1. NEORAL [Suspect]
     Indication: RENAL TRANSPLANT
  2. NEORAL [Suspect]
     Indication: LIVER TRANSPLANT
     Dosage: 125 MG, QD
     Route: 048

REACTIONS (5)
  - ANKLE FRACTURE [None]
  - BLOOD GLUCOSE INCREASED [None]
  - THROMBOSIS [None]
  - BLOOD PRESSURE INCREASED [None]
  - FALL [None]
